FAERS Safety Report 24463088 (Version 1)
Quarter: 2024Q4

REPORT INFORMATION
  Report Type: Report from Study
  Country: US (occurrence: US)
  Receive Date: 20241018
  Receipt Date: 20241018
  Transmission Date: 20250115
  Serious: No
  Sender: ROCHE
  Company Number: US-ROCHE-2859155

PATIENT
  Age: 30 Year
  Sex: Female

DRUGS (8)
  1. XOLAIR [Suspect]
     Active Substance: OMALIZUMAB
     Indication: Anaphylactic shock
     Route: 058
  2. XOLAIR [Suspect]
     Active Substance: OMALIZUMAB
     Indication: Hypotension
     Route: 058
     Dates: start: 20200112
  3. XOLAIR [Suspect]
     Active Substance: OMALIZUMAB
     Dosage: STRENTH:150/MG/ML
     Route: 058
     Dates: start: 202011
  4. ONDANSETRON [Concomitant]
     Active Substance: ONDANSETRON
  5. FOLIC ACID [Concomitant]
     Active Substance: FOLIC ACID
  6. FLUDROCORTISONE [Concomitant]
     Active Substance: FLUDROCORTISONE
  7. FAMOTIDINE [Concomitant]
     Active Substance: FAMOTIDINE
  8. CETIRIZINE HYDROCHLORIDE [Concomitant]
     Active Substance: CETIRIZINE HYDROCHLORIDE

REACTIONS (2)
  - Off label use [Unknown]
  - No adverse event [Unknown]
